FAERS Safety Report 14509763 (Version 1)
Quarter: 2018Q1

REPORT INFORMATION
  Report Type: Spontaneous
  Country: US (occurrence: US)
  Receive Date: 20180209
  Receipt Date: 20180209
  Transmission Date: 20180509
  Serious: No
  Sender: FDA-Public Use
  Company Number: US-PFIZER INC-2018052566

PATIENT
  Age: 63 Year
  Sex: Female

DRUGS (3)
  1. DEMEROL [Suspect]
     Active Substance: MEPERIDINE HYDROCHLORIDE
     Dosage: UNK
  2. OTEZLA [Suspect]
     Active Substance: APREMILAST
     Dosage: UNK
  3. COSENTYX [Suspect]
     Active Substance: SECUKINUMAB
     Dosage: UNK

REACTIONS (1)
  - Drug hypersensitivity [Unknown]
